FAERS Safety Report 14308746 (Version 1)
Quarter: 2017Q4

REPORT INFORMATION
  Report Type: Spontaneous
  Country: US (occurrence: US)
  Receive Date: 20171220
  Receipt Date: 20171220
  Transmission Date: 20180321
  Serious: Yes (Other)
  Sender: FDA-Public Use
  Company Number: US-BAYER-2017-241807

PATIENT
  Age: 58 Year
  Sex: Female

DRUGS (3)
  1. ENOXAPARIN [Interacting]
     Active Substance: ENOXAPARIN
  2. CLOPIDOGREL [Interacting]
     Active Substance: CLOPIDOGREL BISULFATE
  3. ACETYLSALICYLIC ACID({=100 MG) [Suspect]
     Active Substance: ASPIRIN

REACTIONS (5)
  - Melaena [None]
  - Gastrointestinal ulcer [None]
  - Drug administration error [None]
  - Upper gastrointestinal haemorrhage [None]
  - Labelled drug-drug interaction medication error [None]
